FAERS Safety Report 20240641 (Version 1)
Quarter: 2021Q4

REPORT INFORMATION
  Report Type: Spontaneous
  Country: US (occurrence: None)
  Receive Date: 20211228
  Receipt Date: 20211228
  Transmission Date: 20220303
  Serious: Yes (Other)
  Sender: FDA-Public Use
  Company Number: None

PATIENT
  Age: 40 Year
  Sex: Female
  Weight: 63 kg

DRUGS (1)
  1. .DELTA.8-TETRAHYDROCANNABINOL [Suspect]
     Active Substance: .DELTA.8-TETRAHYDROCANNABINOL
     Indication: Sleep disorder
     Dosage: OTHER QUANTITY : 1 OUNCE(S);?
     Route: 048

REACTIONS (4)
  - Panic attack [None]
  - Hallucination [None]
  - Gait inability [None]
  - Hypokinesia [None]

NARRATIVE: CASE EVENT DATE: 20211215
